FAERS Safety Report 5332058-X (Version None)
Quarter: 2007Q2

REPORT INFORMATION
  Report Type: 
  Country: None (occurrence: None)
  Receive Date: 20070306
  Receipt Date: 20061213
  Transmission Date: 20071010
  Serious: Yes (Other)
  Sender: FDA-Public Use
  Company Number: A03200600036

PATIENT
  Age: 70 Year
  Sex: Female

DRUGS (9)
  1. PLAVIX [Suspect]
     Indication: CARDIAC OPERATION
     Dosage: 75 MG QD - ORAL
     Route: 048
     Dates: start: 20051207
  2. ALLOPURINOL [Suspect]
     Indication: GOUT
     Dosage: ORAL
     Route: 048
     Dates: start: 19980101
  3. AMOXICILLIN TRIHYDRATE [Suspect]
     Dosage: ORAL
     Route: 048
     Dates: start: 20051201, end: 20051201
  4. LIPITOR [Suspect]
  5. ACETYLSALICYLIC ACID SRT [Concomitant]
  6. GLYBURIDE [Concomitant]
  7. FUROSEMIDE [Concomitant]
  8. DESLORATADINE [Concomitant]
  9. VALSARTAN [Concomitant]

REACTIONS (4)
  - ARTHRALGIA [None]
  - CONTUSION [None]
  - CORONARY ARTERY OCCLUSION [None]
  - MYALGIA [None]
